FAERS Safety Report 8853144 (Version 2)
Quarter: 2012Q4

REPORT INFORMATION
  Report Type: 
  Country: JP (occurrence: JP)
  Receive Date: 20121022
  Receipt Date: 20121031
  Transmission Date: 20130627
  Serious: Yes (Life-Threatening, Other)
  Sender: FDA-Public Use
  Company Number: JP-ASTRAZENECA-2012SE79766

PATIENT
  Age: 86 Year
  Sex: Female
  Weight: 43 kg

DRUGS (1)
  1. MARCAIN [Suspect]
     Indication: SPINAL ANAESTHESIA
     Route: 029

REACTIONS (2)
  - Cardiac arrest [Recovered/Resolved]
  - Pulmonary embolism [Unknown]
